FAERS Safety Report 4751956-9 (Version None)
Quarter: 2005Q3

REPORT INFORMATION
  Report Type: 
  Country: None (occurrence: None)
  Receive Date: 20050822
  Receipt Date: 20050630
  Transmission Date: 20060218
  Serious: No
  Sender: FDA-Public Use
  Company Number: PHEH2005US07357

PATIENT
  Sex: Female

DRUGS (2)
  1. ZELNORM [Suspect]
     Indication: IRRITABLE BOWEL SYNDROME
     Dosage: 6 MG BID ORAL
     Route: 048
     Dates: start: 20050201, end: 20050301
  2. ZELNORM [Suspect]
     Dosage: 6 MG BID ORAL
     Route: 048
     Dates: start: 20050607

REACTIONS (1)
  - GASTROINTESTINAL MOTILITY DISORDER [None]
